FAERS Safety Report 9307487 (Version 1)
Quarter: 2013Q2

REPORT INFORMATION
  Report Type: Spontaneous
  Country: NO (occurrence: NO)
  Receive Date: 20130524
  Receipt Date: 20130524
  Transmission Date: 20140414
  Serious: Yes (Hospitalization)
  Sender: FDA-Public Use
  Company Number: NO-ROCHE-1227664

PATIENT
  Age: 70 Year
  Sex: Male

DRUGS (6)
  1. MABTHERA [Suspect]
     Indication: GRANULOMATOSIS WITH POLYANGIITIS
     Dosage: CYCLE 4A WAS GIVEN 20130423
     Route: 041
  2. SOMAC (NORWAY) [Concomitant]
     Route: 048
  3. ALBYL-E [Concomitant]
     Route: 048
  4. PREDNISOLON [Concomitant]
     Route: 048
  5. PROSCAR [Concomitant]
     Indication: PROSTATE CANCER
     Route: 048
  6. IMUREL [Concomitant]
     Dosage: 100 MG MORNING, 50 MG EVENING
     Route: 048

REACTIONS (1)
  - Subarachnoid haemorrhage [Recovering/Resolving]
